FAERS Safety Report 16388672 (Version 1)
Quarter: 2019Q3

REPORT INFORMATION
  Report Type: Spontaneous
  Country: US (occurrence: US)
  Receive Date: 20190602
  Receipt Date: 20190602
  Transmission Date: 20191004
  Serious: Yes (Disabling)
  Sender: FDA-Public Use
  Company Number: None

PATIENT
  Age: 53 Year
  Sex: Male
  Weight: 74.25 kg

DRUGS (1)
  1. XTAMPZA ER [Suspect]
     Active Substance: OXYCODONE

REACTIONS (13)
  - Abdominal pain upper [None]
  - Disturbance in attention [None]
  - Anhedonia [None]
  - Gastroenteritis viral [None]
  - Depression [None]
  - Malaise [None]
  - Diarrhoea [None]
  - Product substitution issue [None]
  - Anxiety [None]
  - Chest pain [None]
  - Quality of life decreased [None]
  - Decreased interest [None]
  - Inability to afford medication [None]

NARRATIVE: CASE EVENT DATE: 20190318
